FAERS Safety Report 6403763-9 (Version None)
Quarter: 2009Q4

REPORT INFORMATION
  Report Type: 
  Country: None (occurrence: None)
  Receive Date: 20091013
  Receipt Date: 20091001
  Transmission Date: 20100525
  Serious: Yes (Hospitalization)
  Sender: FDA-Public Use
  Company Number: 2009EU0033782

PATIENT
  Age: 13 Year
  Sex: Female

DRUGS (1)
  1. PROGRAF [Suspect]
     Indication: NEPHROTIC SYNDROME
     Dosage: 2.5 MG, BID, ORAL
     Route: 048

REACTIONS (4)
  - ASTHENIA [None]
  - HYPOTENSION [None]
  - OFF LABEL USE [None]
  - VERTIGO [None]
